FAERS Safety Report 16781896 (Version 1)
Quarter: 2019Q3

REPORT INFORMATION
  Report Type: Spontaneous
  Country: US (occurrence: US)
  Receive Date: 20190906
  Receipt Date: 20190906
  Transmission Date: 20191005
  Serious: No
  Sender: FDA-Public Use
  Company Number: US-LANNETT COMPANY, INC.-US-2019LAN001050

PATIENT
  Age: 12 Year
  Sex: Male

DRUGS (2)
  1. DRONABINOL. [Suspect]
     Active Substance: DRONABINOL
     Indication: IMPAIRED GASTRIC EMPTYING
     Dosage: 2.5 MG, QD
     Route: 048
     Dates: start: 201903, end: 2019
  2. DRONABINOL. [Suspect]
     Active Substance: DRONABINOL
     Dosage: 5.0 MG, QD
     Route: 048
     Dates: start: 201906, end: 2019

REACTIONS (5)
  - Vertigo [Unknown]
  - Heart rate increased [Unknown]
  - Mydriasis [Unknown]
  - Euphoric mood [Unknown]
  - Hyperventilation [Unknown]

NARRATIVE: CASE EVENT DATE: 201906
